FAERS Safety Report 5110662-1 (Version None)
Quarter: 2006Q3

REPORT INFORMATION
  Report Type: 
  Country: None (occurrence: None)
  Receive Date: 20060919
  Receipt Date: 20060911
  Transmission Date: 20061208
  Serious: Yes (Other)
  Sender: FDA-Public Use
  Company Number: S06-USA-03641-01

PATIENT
  Sex: Female

DRUGS (2)
  1. NAMENDA [Suspect]
  2. NAMENDA [Suspect]

REACTIONS (1)
  - MANIA [None]
